FAERS Safety Report 4429510-8 (Version None)
Quarter: 2004Q3

REPORT INFORMATION
  Report Type: 
  Country: None (occurrence: None)
  Receive Date: 20040819
  Receipt Date: 20040720
  Transmission Date: 20050211
  Serious: Yes (Hospitalization)
  Sender: FDA-Public Use
  Company Number: FR-ROCHE-374805

PATIENT
  Age: 55 Year
  Sex: Female

DRUGS (2)
  1. CAPECITABINE [Suspect]
     Indication: BREAST CANCER
     Route: 048
     Dates: start: 20040701, end: 20040715
  2. NAVELBINE [Suspect]
     Indication: BREAST CANCER
     Dosage: ON DAY 1 AND 8.
     Route: 048
     Dates: start: 20040701, end: 20040715

REACTIONS (1)
  - FEBRILE BONE MARROW APLASIA [None]
